FAERS Safety Report 10729573 (Version 1)
Quarter: 2015Q1

REPORT INFORMATION
  Report Type: Spontaneous
  Country: US (occurrence: None)
  Receive Date: 20150121
  Receipt Date: 20150121
  Transmission Date: 20150721
  Serious: Yes (Hospitalization)
  Sender: FDA-Public Use
  Company Number: None

PATIENT
  Age: 49 Year
  Sex: Female

DRUGS (6)
  1. METOPROLOL [Concomitant]
     Active Substance: METOPROLOL
  2. SOVALDI [Suspect]
     Active Substance: SOFOSBUVIR
     Indication: CHRONIC HEPATITIS
     Dosage: 10-22-2014 TO UNK IF CONTIINUING
     Route: 048
     Dates: start: 20141022
  3. XANAX [Concomitant]
     Active Substance: ALPRAZOLAM
  4. RIBASPHERE [Suspect]
     Active Substance: RIBAVIRIN
     Indication: CHRONIC HEPATITIS
     Dosage: 10-22-2014 TO UNK IF CONTINUING
     Route: 048
     Dates: start: 20141022
  5. INSULINE [Concomitant]
     Active Substance: INSULIN NOS
  6. BENADRYL [Concomitant]
     Active Substance: DIPHENHYDRAMINE HYDROCHLORIDE

REACTIONS (2)
  - Gastric perforation [None]
  - Peritonitis [None]

NARRATIVE: CASE EVENT DATE: 20150110
